FAERS Safety Report 11882112 (Version 2)
Quarter: 2016Q1

REPORT INFORMATION
  Report Type: Spontaneous
  Country: US (occurrence: US)
  Receive Date: 20151231
  Receipt Date: 20160215
  Transmission Date: 20160526
  Serious: Yes (Other)
  Sender: FDA-Public Use
  Company Number: US-BEH-2015057285

PATIENT
  Age: 53 Year
  Sex: Female
  Weight: 88 kg

DRUGS (21)
  1. LISINOPRIL-HCTZ [Concomitant]
     Active Substance: HYDROCHLOROTHIAZIDE\LISINOPRIL
  2. CEFTIN [Concomitant]
     Active Substance: CEFUROXIME AXETIL
  3. EPIPEN [Concomitant]
     Active Substance: EPINEPHRINE
  4. PROZAC [Concomitant]
     Active Substance: FLUOXETINE HYDROCHLORIDE
  5. HIZENTRA [Suspect]
     Active Substance: HUMAN IMMUNOGLOBULIN G
     Indication: HYPOGAMMAGLOBULINAEMIA
     Dosage: START DATE: MAR-2012
     Route: 058
  6. ROBAXIN [Concomitant]
     Active Substance: METHOCARBAMOL
  7. PROBIOTIC [Concomitant]
     Active Substance: PROBIOTICS NOS
  8. XANAX [Concomitant]
     Active Substance: ALPRAZOLAM
  9. LIDOCAINE. [Concomitant]
     Active Substance: LIDOCAINE
  10. LAMICTAL [Concomitant]
     Active Substance: LAMOTRIGINE
  11. NEXIUM [Concomitant]
     Active Substance: ESOMEPRAZOLE MAGNESIUM
  12. HIZENTRA [Suspect]
     Active Substance: HUMAN IMMUNOGLOBULIN G
     Indication: IMMUNODEFICIENCY COMMON VARIABLE
     Dosage: START DATE: MAR-2012
     Route: 058
  13. MYLANTA [Concomitant]
     Active Substance: ALUMINUM HYDROXIDE\DIMETHICONE\MAGNESIUM HYDROXIDE
  14. HIZENTRA [Suspect]
     Active Substance: HUMAN IMMUNOGLOBULIN G
     Indication: HYPOGAMMAGLOBULINAEMIA
     Dosage: START DATE: MAR-2012
     Route: 058
  15. AMOXICILLIN. [Concomitant]
     Active Substance: AMOXICILLIN
  16. ACETAMINOPHEN. [Concomitant]
     Active Substance: ACETAMINOPHEN
  17. DIPHENHYDRAMINE. [Concomitant]
     Active Substance: DIPHENHYDRAMINE
  18. LIDOCAINE/PRILOCAINE [Concomitant]
  19. METOCLOPRAMIDE. [Concomitant]
     Active Substance: METOCLOPRAMIDE
  20. CRANBERRY. [Concomitant]
     Active Substance: CRANBERRY
  21. VITAMIN D3 [Concomitant]
     Active Substance: CHOLECALCIFEROL

REACTIONS (1)
  - Respiratory tract infection [Recovered/Resolved]

NARRATIVE: CASE EVENT DATE: 20151207
